FAERS Safety Report 7979697 (Version 2)
Quarter: 2013Q2

REPORT INFORMATION
  Report Type: Report from Study
  Country: JP (occurrence: JP)
  Receive Date: 20110608
  Receipt Date: 20130625
  Transmission Date: 20140414
  Serious: Yes (Other)
  Sender: FDA-Public Use
  Company Number: PHHY2011JP47297

PATIENT
  Age: 69 Year
  Sex: Male

DRUGS (3)
  1. AFINITOR [Suspect]
     Indication: RENAL CELL CARCINOMA
     Dosage: 10 MG, DAILY
     Route: 048
     Dates: start: 20110215, end: 20110228
  2. DUROTEP [Concomitant]
     Indication: METASTASES TO LIVER
     Dosage: 4.2 MG, UNK
     Route: 065
     Dates: start: 20110215
  3. ANPEC [Concomitant]
     Indication: METASTASES TO LIVER
     Dosage: 10 MG, UNK
     Route: 065
     Dates: start: 20110215

REACTIONS (6)
  - Platelet count decreased [Recovering/Resolving]
  - Aspartate aminotransferase increased [Unknown]
  - Blood lactate dehydrogenase increased [Unknown]
  - Haemoglobin decreased [Not Recovered/Not Resolved]
  - Renal cell carcinoma [Unknown]
  - Malignant neoplasm progression [Unknown]
